FAERS Safety Report 23279420 (Version 1)
Quarter: 2023Q4

REPORT INFORMATION
  Report Type: Spontaneous
  Country: US (occurrence: US)
  Receive Date: 20231209
  Receipt Date: 20231209
  Transmission Date: 20240110
  Serious: No
  Sender: FDA-Public Use
  Company Number: US-drreddys-SPO/USA/23/0187998

PATIENT
  Age: 16 Year
  Sex: Female

DRUGS (2)
  1. ACCUTANE [Suspect]
     Active Substance: ISOTRETINOIN
     Indication: Acne
     Dosage: BOX OF 30 (3 PACKS OF 10 CAPSULES)
     Dates: start: 20231103
  2. ACCUTANE [Suspect]
     Active Substance: ISOTRETINOIN
     Dosage: BOX OF 30 (3 PACKS OF 10 CAPSULES)
     Dates: start: 20230501, end: 20230930

REACTIONS (3)
  - Headache [Unknown]
  - Product prescribing error [Unknown]
  - Product dose omission issue [Unknown]

NARRATIVE: CASE EVENT DATE: 20231027
